FAERS Safety Report 9375476 (Version 2)
Quarter: 2013Q3

REPORT INFORMATION
  Report Type: Report from Study
  Country: US (occurrence: US)
  Receive Date: 20130628
  Receipt Date: 20130705
  Transmission Date: 20140515
  Serious: Yes (Hospitalization, Other)
  Sender: FDA-Public Use
  Company Number: US-ABBOTT-13P-163-1108860-00

PATIENT
  Age: 76 Year
  Sex: Female

DRUGS (8)
  1. HUMIRA [Suspect]
     Indication: CROHN^S DISEASE
     Dates: start: 2011, end: 201301
  2. HUMIRA [Suspect]
     Dates: start: 20130617
  3. LEVOTHYROXINE [Concomitant]
     Indication: PRODUCT USED FOR UNKNOWN INDICATION
     Dosage: EVERY MORNING
  4. SPIRONOLACTONE [Concomitant]
     Indication: CARDIAC FAILURE CONGESTIVE
     Dosage: WITH BREAKFAST
  5. TORSEMIDE [Concomitant]
     Indication: CARDIAC FAILURE CONGESTIVE
  6. FLUOXETINE [Concomitant]
     Indication: PRODUCT USED FOR UNKNOWN INDICATION
  7. ZETIA [Concomitant]
     Indication: BLOOD CHOLESTEROL INCREASED
  8. INSULIN [Concomitant]
     Indication: DIABETES MELLITUS
     Dosage: 70/30 PEN 5-10 UNITS BASED ON BLOOD SUGAR READING

REACTIONS (13)
  - Heart valve incompetence [Recovering/Resolving]
  - Myocardial infarction [Recovering/Resolving]
  - Injection site pain [Unknown]
  - Injection site pain [Recovered/Resolved]
  - Arterial disorder [Recovering/Resolving]
  - Hypertension [Unknown]
  - Dizziness [Unknown]
  - Fall [Recovered/Resolved]
  - Heart rate irregular [Recovering/Resolving]
  - Intestinal obstruction [Recovered/Resolved]
  - Gastrointestinal inflammation [Unknown]
  - Crohn^s disease [Unknown]
  - Breast cancer [Unknown]
